FAERS Safety Report 7367419-0 (Version None)
Quarter: 2011Q1

REPORT INFORMATION
  Report Type: 
  Country: None (occurrence: None)
  Receive Date: 20110322
  Receipt Date: 20110317
  Transmission Date: 20110831
  Serious: Yes (Life-Threatening, Other)
  Sender: FDA-Public Use
  Company Number: KR-GENZYME-THYM-1002282

PATIENT
  Sex: Female
  Weight: 34 kg

DRUGS (15)
  1. ACETAMINOPHEN [Concomitant]
     Indication: PREMEDICATION
     Dosage: UNK
     Dates: start: 20060202, end: 20060204
  2. ACETAMINOPHEN [Concomitant]
     Indication: PREMEDICATION
     Dosage: 325 MG, QD
     Route: 048
     Dates: start: 20110125, end: 20110127
  3. ACETAMINOPHEN [Concomitant]
     Dosage: 325 MG, QD
     Route: 048
     Dates: start: 20110131, end: 20110131
  4. THYMOGLOBULIN [Suspect]
     Dosage: 90 MG, QD
     Route: 042
     Dates: start: 20110126, end: 20110127
  5. THYMOGLOBULIN [Suspect]
     Dosage: 90 UNK, UNK
     Route: 042
     Dates: start: 20110131, end: 20110131
  6. THYMOGLOBULIN [Suspect]
     Indication: ACUTE LYMPHOCYTIC LEUKAEMIA RECURRENT
     Dosage: 2.5 MG/KG, UNK
     Route: 042
     Dates: start: 20060202, end: 20060204
  7. ANTIHISTAMINES [Concomitant]
     Indication: PREMEDICATION
     Dosage: UNK
     Dates: start: 20060202, end: 20060204
  8. SOLU-MEDROL [Concomitant]
     Indication: PREMEDICATION
     Dosage: 35 UNK, UNK
     Dates: start: 20110125, end: 20110127
  9. HEPARIN [Concomitant]
     Indication: PROPHYLAXIS
     Dosage: 3600 IU, UNK
     Route: 042
     Dates: start: 20110119
  10. PROSTAGLANDIN E1 [Concomitant]
     Indication: PROPHYLAXIS
     Dosage: 30 MCG, UNK
     Route: 042
     Dates: start: 20110125
  11. CORTICOSTEROIDS [Concomitant]
     Indication: PREMEDICATION
     Dosage: UNK
     Dates: start: 20060202, end: 20060204
  12. CHLORPHENAMINE [Concomitant]
     Indication: PREMEDICATION
     Dosage: 4 MG, QD
     Dates: start: 20110125, end: 20110127
  13. CYCLOPHOSPHAMIDE [Concomitant]
     Indication: BONE MARROW CONDITIONING REGIMEN
     Dosage: 1805 MG, QD
     Route: 042
     Dates: start: 20110123, end: 20110125
  14. THYMOGLOBULIN [Suspect]
     Indication: BONE MARROW TRANSPLANT
     Dosage: 90 MG, QD
     Route: 042
     Dates: start: 20110125, end: 20110125
  15. CHLORPHENAMINE [Concomitant]
     Dosage: 4 MG, QD
     Dates: start: 20110131, end: 20110131

REACTIONS (7)
  - HYPOTENSION [None]
  - HYPOXIA [None]
  - RENAL IMPAIRMENT [None]
  - LYMPHOCYTE COUNT DECREASED [None]
  - PYREXIA [None]
  - PULMONARY OEDEMA [None]
  - SHOCK [None]
